FAERS Safety Report 9099187 (Version 2)
Quarter: 2013Q1

REPORT INFORMATION
  Report Type: Spontaneous
  Country: US (occurrence: US)
  Receive Date: 20130213
  Receipt Date: 20130221
  Transmission Date: 20140127
  Serious: No
  Sender: FDA-Public Use
  Company Number: US-009507513-1302USA004001

PATIENT
  Age: 73 None
  Sex: Female

DRUGS (1)
  1. VYTORIN [Suspect]
     Dosage: UNK
     Route: 048

REACTIONS (3)
  - Pneumonia [Recovered/Resolved]
  - Exposure to mould [Unknown]
  - Product quality issue [Unknown]
